FAERS Safety Report 15221182 (Version 1)
Quarter: 2018Q4

REPORT INFORMATION
  Report Type: Spontaneous
  Country: US (occurrence: IT)
  Receive Date: 20180731
  Receipt Date: 20180731
  Transmission Date: 20190204
  Serious: Yes (Hospitalization)
  Sender: FDA-Public Use
  Company Number: IT-HIKMA PHARMACEUTICALS USA INC.-IT-H14001-18-05709

PATIENT
  Age: 34 Year
  Sex: Male

DRUGS (9)
  1. FILGRASTIM [Concomitant]
     Active Substance: FILGRASTIM
     Indication: PROPHYLAXIS
     Dosage: DOSAGE FORM: UNSPECIFIED ()
     Route: 065
     Dates: start: 20180526
  2. ACETYLSALICYLIC ACID [Concomitant]
     Active Substance: ASPIRIN
     Indication: PROPHYLAXIS
     Dosage: DOSAGE FORM: UNSPECIFIED ()
     Route: 065
     Dates: start: 20180504
  3. MESNA. [Suspect]
     Active Substance: MESNA
     Indication: SARCOMA METASTATIC
     Dosage: DOSAGE FORM: UNSPECIFIED, 3000 UNITS UNSPECIFIED ON DAY 1 TO DAY 4 PER CYCLE (3)
     Route: 042
     Dates: start: 20180421
  4. PANTOPRAZOLE [Concomitant]
     Active Substance: PANTOPRAZOLE
     Indication: GASTROINTESTINAL DISORDER THERAPY
     Dosage: DOSAGE FORM: UNSPECIFIED ()
     Route: 065
     Dates: start: 20180504
  5. DOXORUBICIN [Suspect]
     Active Substance: DOXORUBICIN
     Indication: SARCOMA METASTATIC
     Route: 042
     Dates: start: 20180421
  6. IFOSFAMIDE. [Suspect]
     Active Substance: IFOSFAMIDE
     Indication: SARCOMA METASTATIC
     Dosage: DOSAGE FORM: UNSPECIFIED, DAYS 1-4 OF A 21 DAY CYCLE ; CYCLICAL
     Route: 042
     Dates: start: 20180421
  7. OLARATUMAB [Suspect]
     Active Substance: OLARATUMAB
     Indication: SARCOMA METASTATIC
     Dosage: DOSAGE FORM: UNSPECIFIED, ON D1 AND D8 OF 21 DAY CYCLE
     Route: 042
     Dates: start: 20180421
  8. GABAPENTIN. [Concomitant]
     Active Substance: GABAPENTIN
     Indication: PAIN
     Dosage: DOSAGE FORM: UNSPECIFIED ()
     Route: 065
     Dates: start: 20180504
  9. TRAMADOL HYDROCHLORIDE. [Concomitant]
     Active Substance: TRAMADOL HYDROCHLORIDE
     Indication: PAIN
     Dosage: DOSAGE FORM: UNSPECIFIED ()
     Route: 065
     Dates: start: 20180504

REACTIONS (2)
  - Febrile neutropenia [Recovered/Resolved]
  - Off label use [Unknown]

NARRATIVE: CASE EVENT DATE: 20180531
